FAERS Safety Report 22967555 (Version 3)
Quarter: 2024Q3

REPORT INFORMATION
  Report Type: Spontaneous
  Country: US (occurrence: US)
  Receive Date: 20230921
  Receipt Date: 20240816
  Transmission Date: 20241016
  Serious: Yes (Hospitalization, Congenital Anomaly)
  Sender: JOHNSON AND JOHNSON
  Company Number: US-JNJFOC-20230934032

PATIENT
  Age: 0 Year
  Sex: Male
  Weight: 2.43 kg

DRUGS (5)
  1. TYLENOL [Suspect]
     Active Substance: ACETAMINOPHEN
     Indication: Migraine
     Dosage: AS REQUIRED
     Route: 064
     Dates: start: 202211
  2. EFFEXOR [Suspect]
     Active Substance: VENLAFAXINE HYDROCHLORIDE
     Indication: Migraine
     Route: 064
     Dates: start: 2019
  3. LABETALOL [Concomitant]
     Active Substance: LABETALOL\LABETALOL HYDROCHLORIDE
     Indication: Hypertension
     Route: 064
  4. CLARITIN [Concomitant]
     Active Substance: LORATADINE
     Indication: Multiple allergies
     Route: 064
  5. ASPIRIN [Concomitant]
     Active Substance: ASPIRIN
     Indication: Pre-eclampsia
     Route: 064
     Dates: start: 20230626, end: 20230630

REACTIONS (5)
  - Congenital renal cyst [Not Recovered/Not Resolved]
  - Kidney enlargement [Not Recovered/Not Resolved]
  - Premature baby [Recovering/Resolving]
  - Breech presentation [Recovered/Resolved]
  - Foetal exposure during pregnancy [Unknown]

NARRATIVE: CASE EVENT DATE: 20221101
